FAERS Safety Report 8872545 (Version 1)
Quarter: 2012Q4

REPORT INFORMATION
  Report Type: 
  Country: US (occurrence: US)
  Receive Date: 20121026
  Receipt Date: 20121026
  Transmission Date: 20130627
  Serious: No
  Sender: FDA-Public Use
  Company Number: US-AMGEN-USASP2012049441

PATIENT
  Age: 64 Year
  Sex: Female

DRUGS (9)
  1. ENBREL [Suspect]
     Indication: PRODUCT USED FOR UNKNOWN INDICATION
     Dosage: 50 mg, qwk
     Route: 058
  2. CLIMARA [Concomitant]
     Dosage: 0.025 mg, UNK
  3. CYTOMEL [Concomitant]
     Dosage: 25 mug, UNK
  4. SYNTHROID [Concomitant]
     Dosage: 112 mug, UNK
  5. ZOCOR [Concomitant]
     Dosage: 10 mg, UNK
  6. LYRICA [Concomitant]
     Dosage: 100 mg, UNK
  7. LEXAPRO [Concomitant]
     Dosage: 10 mg, UNK
  8. VICODIN [Concomitant]
     Dosage: 5-500 mg
  9. SOMA [Concomitant]
     Dosage: 350 mg, UNK

REACTIONS (1)
  - Paraesthesia [Unknown]
